FAERS Safety Report 17236270 (Version 1)
Quarter: 2019Q4

REPORT INFORMATION
  Report Type: Spontaneous
  Country: US (occurrence: US)
  Receive Date: 20191211
  Receipt Date: 20191211
  Transmission Date: 20200122
  Serious: Yes (Death)
  Sender: FDA-Public Use
  Company Number: None

PATIENT
  Age: 64 Year
  Sex: Female

DRUGS (1)
  1. STELARA [Suspect]
     Active Substance: USTEKINUMAB
     Indication: PSORIASIS
     Dosage: ?          OTHER DOSE:1 SYR;OTHER FREQUENCY:Q12WKS;?
     Route: 058
     Dates: start: 20180209, end: 20191209

REACTIONS (1)
  - Death [None]

NARRATIVE: CASE EVENT DATE: 20191209
